FAERS Safety Report 19332433 (Version 3)
Quarter: 2025Q4

REPORT INFORMATION
  Report Type: Spontaneous
  Country: EU (occurrence: None)
  Receive Date: 20210529
  Receipt Date: 20251216
  Transmission Date: 20260118
  Serious: Yes (Death, Hospitalization, Other)
  Sender: AUROBINDO
  Company Number: EU-AUROBINDO-AUR-APL-2021-022432

PATIENT
  Age: 53 Year
  Sex: Male

DRUGS (3)
  1. VALPROATE SODIUM [Suspect]
     Active Substance: VALPROATE SODIUM
     Indication: Epilepsy
     Dosage: 600 MILLIGRAM, FOUR TIMES/DAY
     Route: 065
  2. ESOMEPRAZOLE [Concomitant]
     Active Substance: ESOMEPRAZOLE
     Indication: Product used for unknown indication
     Dosage: UNK
     Route: 065
  3. INSULIN NOS [Concomitant]
     Active Substance: INSULIN NOS
     Indication: Type 2 diabetes mellitus
     Dosage: UNK, ONCE A DAY

REACTIONS (14)
  - Acute on chronic liver failure [Fatal]
  - Toxicity to various agents [Fatal]
  - Hypokalaemia [Fatal]
  - Respiratory distress [Fatal]
  - Depressed level of consciousness [Fatal]
  - Vomiting [Fatal]
  - Weight decreased [Fatal]
  - Hyponatraemia [Fatal]
  - Hypocalcaemia [Fatal]
  - Hyperglycaemia [Fatal]
  - Anaemia [Fatal]
  - Hypoalbuminaemia [Fatal]
  - Haemorrhagic diathesis [Fatal]
  - Multiple organ dysfunction syndrome [Fatal]
